FAERS Safety Report 9150068 (Version 1)
Quarter: 2013Q1

REPORT INFORMATION
  Report Type: Spontaneous
  Country: US (occurrence: US)
  Receive Date: 20130308
  Receipt Date: 20130308
  Transmission Date: 20140127
  Serious: Yes (Other)
  Sender: FDA-Public Use
  Company Number: US-ASTRAZENECA-2013SE14307

PATIENT
  Age: 80 Year
  Sex: Male

DRUGS (3)
  1. BRILINTA [Suspect]
     Route: 048
  2. PRADAXA [Suspect]
  3. ASPIRIN [Concomitant]

REACTIONS (1)
  - Circumstance or information capable of leading to medication error [Unknown]
